FAERS Safety Report 24282806 (Version 2)
Quarter: 2024Q3

REPORT INFORMATION
  Report Type: Spontaneous
  Country: US (occurrence: US)
  Receive Date: 20240904
  Receipt Date: 20240913
  Transmission Date: 20241017
  Serious: No
  Sender: PFIZER
  Company Number: US-PFIZER INC-202400247933

PATIENT
  Age: 35 Year
  Sex: Female
  Weight: 136.05 kg

DRUGS (4)
  1. PAXLOVID [Suspect]
     Active Substance: NIRMATRELVIR\RITONAVIR
     Indication: COVID-19 treatment
     Dosage: STANDARD DOSE PACK
     Route: 048
     Dates: start: 20240823, end: 20240827
  2. PROPRANOLOL [Concomitant]
     Active Substance: PROPRANOLOL HYDROCHLORIDE
     Indication: Anxiety
     Dosage: 10 MG, 1X/DAY
  3. LEXAPRO [Concomitant]
     Active Substance: ESCITALOPRAM OXALATE
     Indication: Anxiety
     Dosage: 20 MG, 1X/DAY
  4. MOUNJARO [Concomitant]
     Active Substance: TIRZEPATIDE
     Indication: Weight decreased
     Dosage: 5 MG, WEEKLY

REACTIONS (2)
  - COVID-19 [Recovering/Resolving]
  - Disease recurrence [Recovering/Resolving]

NARRATIVE: CASE EVENT DATE: 20240831
